FAERS Safety Report 9147504 (Version 2)
Quarter: 2013Q1

REPORT INFORMATION
  Report Type: Report from Study
  Country: CA (occurrence: CA)
  Receive Date: 20130307
  Receipt Date: 20130329
  Transmission Date: 20140127
  Serious: Yes (Other)
  Sender: FDA-Public Use
  Company Number: CA-ABBOTT-13P-028-1052760-00

PATIENT
  Age: 43 Year
  Sex: Female
  Weight: 70 kg

DRUGS (18)
  1. HUMIRA [Suspect]
     Indication: CROHN^S DISEASE
     Route: 058
     Dates: start: 20090828, end: 20130121
  2. HUMIRA [Suspect]
     Route: 058
     Dates: start: 20130222
  3. HUMIRA [Suspect]
     Route: 058
     Dates: start: 201303
  4. FLEXERIL [Suspect]
     Indication: PAIN
     Route: 048
     Dates: start: 201301
  5. HEPARIN [Concomitant]
     Indication: PRODUCT USED FOR UNKNOWN INDICATION
     Dosage: 5000
     Route: 058
  6. ELAVIL [Concomitant]
     Indication: PRODUCT USED FOR UNKNOWN INDICATION
  7. PAXIL [Concomitant]
     Indication: PRODUCT USED FOR UNKNOWN INDICATION
     Route: 048
  8. DILANTIN [Concomitant]
     Indication: EPILEPSY
     Dosage: 100
     Route: 048
  9. NEXIUM [Concomitant]
     Indication: GASTROOESOPHAGEAL REFLUX DISEASE
     Dosage: 40
     Route: 048
  10. NEXIUM [Concomitant]
     Indication: DYSPEPSIA
  11. CA-D [Concomitant]
     Dosage: 500
  12. RIVOTRIL [Concomitant]
     Indication: PRODUCT USED FOR UNKNOWN INDICATION
     Dosage: HS
     Route: 048
  13. LYRICA [Concomitant]
     Indication: INTERVERTEBRAL DISC PROTRUSION
     Dosage: HS
     Route: 048
  14. VITAMIN B12 [Concomitant]
     Indication: PRODUCT USED FOR UNKNOWN INDICATION
     Route: 030
  15. CALCITE [Concomitant]
     Indication: PRODUCT USED FOR UNKNOWN INDICATION
     Route: 048
  16. VENTOLIN FLOVENT [Concomitant]
     Indication: ASTHMA
  17. TYLENOL [Concomitant]
     Indication: PAIN
     Route: 048
  18. GRAVOL [Concomitant]
     Indication: PRODUCT USED FOR UNKNOWN INDICATION
     Route: 048

REACTIONS (10)
  - Pain [Not Recovered/Not Resolved]
  - Peritonitis [Unknown]
  - Appendicitis [Recovered/Resolved]
  - Pain [Unknown]
  - Eye pruritus [Unknown]
  - Eye pain [Unknown]
  - Migraine [Unknown]
  - Lip dry [Unknown]
  - Joint stiffness [Unknown]
  - Diarrhoea [Unknown]
